FAERS Safety Report 16325258 (Version 1)
Quarter: 2019Q2

REPORT INFORMATION
  Report Type: Spontaneous
  Country: US (occurrence: US)
  Receive Date: 20190517
  Receipt Date: 20190517
  Transmission Date: 20190711
  Serious: Yes (Other)
  Sender: FDA-Public Use
  Company Number: US-BAYER-2019-095542

PATIENT
  Age: 31 Year
  Sex: Male

DRUGS (3)
  1. AVELOX [Suspect]
     Active Substance: MOXIFLOXACIN HYDROCHLORIDE
     Dosage: 400 MG, QD
  2. AZITHROMYCIN ANHYDROUS. [Suspect]
     Active Substance: AZITHROMYCIN ANHYDROUS
     Dosage: 1 G
  3. DOXYCYCLINE. [Suspect]
     Active Substance: DOXYCYCLINE

REACTIONS (2)
  - Pathogen resistance [None]
  - Drug ineffective [None]
